FAERS Safety Report 17250010 (Version 11)
Quarter: 2020Q4

REPORT INFORMATION
  Report Type: Report from Study
  Country: None (occurrence: US)
  Receive Date: 20200109
  Receipt Date: 20201117
  Transmission Date: 20210113
  Serious: Yes (Hospitalization, Other)
  Sender: FDA-Public Use
  Company Number: US-ABBVIE-20K-163-3220957-00

PATIENT
  Age: 66 Year
  Sex: Female
  Weight: 82.63 kg

DRUGS (10)
  1. HUMIRA [Suspect]
     Active Substance: ADALIMUMAB
     Indication: CROHN^S DISEASE
     Route: 058
     Dates: start: 201610, end: 2017
  2. ASPIRIN. [Concomitant]
     Active Substance: ASPIRIN
     Indication: PRODUCT USED FOR UNKNOWN INDICATION
  3. HUMIRA [Suspect]
     Active Substance: ADALIMUMAB
     Route: 058
     Dates: start: 2017
  4. PANTOPRAZOLE [Concomitant]
     Active Substance: PANTOPRAZOLE
     Indication: GASTROOESOPHAGEAL REFLUX DISEASE
  5. GLIPIZIDE. [Concomitant]
     Active Substance: GLIPIZIDE
     Indication: TYPE 2 DIABETES MELLITUS
  6. COLESTIPOL [Concomitant]
     Active Substance: COLESTIPOL
     Indication: DIARRHOEA
  7. CALCIUM [Concomitant]
     Active Substance: CALCIUM
     Indication: PRODUCT USED FOR UNKNOWN INDICATION
  8. LISINOPRIL AND HYDROCHLOROTHIAZIDE [Concomitant]
     Active Substance: HYDROCHLOROTHIAZIDE\LISINOPRIL
     Indication: HYPERTENSION
  9. LIALDA [Concomitant]
     Active Substance: MESALAMINE
     Indication: PRODUCT USED FOR UNKNOWN INDICATION
  10. GLIPIZIDE. [Concomitant]
     Active Substance: GLIPIZIDE
     Indication: BLOOD GLUCOSE ABNORMAL

REACTIONS (29)
  - Lithiasis [Recovering/Resolving]
  - Post procedural haemorrhage [Unknown]
  - Pancreatitis [Recovered/Resolved]
  - Pancreatitis [Recovered/Resolved]
  - Pain [Unknown]
  - Haematochezia [Recovered/Resolved]
  - Post procedural complication [Recovering/Resolving]
  - Oedema [Recovering/Resolving]
  - Endoscopic retrograde cholangiopancreatography [Recovering/Resolving]
  - Pancreatitis [Recovered/Resolved]
  - Eye contusion [Recovering/Resolving]
  - Pancreatitis [Recovered/Resolved]
  - Cholelithiasis [Recovered/Resolved]
  - Pancreatic disorder [Recovering/Resolving]
  - Diverticulum [Recovering/Resolving]
  - Muscle spasms [Not Recovered/Not Resolved]
  - Pancreatic pseudocyst [Recovered/Resolved]
  - Pancreatitis [Recovered/Resolved]
  - Endodontic procedure [Recovering/Resolving]
  - Diverticulitis [Unknown]
  - Rash [Recovering/Resolving]
  - Post procedural complication [Unknown]
  - Pancreatic failure [Recovering/Resolving]
  - Pneumonia [Recovering/Resolving]
  - Pancreatitis [Recovering/Resolving]
  - Oesophageal spasm [Recovered/Resolved]
  - Pancreatitis [Recovered/Resolved]
  - Oropharyngeal pain [Recovering/Resolving]
  - Nasopharyngitis [Recovering/Resolving]

NARRATIVE: CASE EVENT DATE: 2017
